FAERS Safety Report 6984031-3 (Version None)
Quarter: 2010Q3

REPORT INFORMATION
  Report Type: 
  Country: None (occurrence: None)
  Receive Date: 20100915
  Receipt Date: 20090601
  Transmission Date: 20110219
  Serious: No
  Sender: FDA-Public Use
  Company Number: US-WYE-H09383009

PATIENT
  Sex: Male

DRUGS (3)
  1. PRISTIQ [Suspect]
     Indication: DEPRESSION
     Route: 048
     Dates: start: 20090415, end: 20090531
  2. PRISTIQ [Suspect]
     Route: 048
     Dates: start: 20090601
  3. ALPRAZOLAM [Concomitant]

REACTIONS (3)
  - DRUG INEFFECTIVE [None]
  - FATIGUE [None]
  - NAUSEA [None]
